FAERS Safety Report 15897723 (Version 6)
Quarter: 2020Q1

REPORT INFORMATION
  Report Type: Spontaneous
  Country: IT (occurrence: IT)
  Receive Date: 20190131
  Receipt Date: 20200130
  Transmission Date: 20200409
  Serious: Yes (Other)
  Sender: FDA-Public Use
  Company Number: IT-CELLTRION INC.-2019IT018162

PATIENT

DRUGS (29)
  1. RITUXIMAB (UNKNOWN) [Suspect]
     Active Substance: RITUXIMAB
     Indication: DIFFUSE LARGE B-CELL LYMPHOMA
     Dosage: UNK
     Route: 065
  2. PREDNISONE. [Suspect]
     Active Substance: PREDNISONE
     Indication: DIFFUSE LARGE B-CELL LYMPHOMA STAGE IV
  3. CYCLOPHOSPHAMIDE. [Suspect]
     Active Substance: CYCLOPHOSPHAMIDE
     Indication: DIFFUSE LARGE B-CELL LYMPHOMA STAGE IV
  4. DACLATASVIR. [Concomitant]
     Active Substance: DACLATASVIR
     Indication: CHRONIC HEPATITIS C
     Dosage: FOR 12 WEEKS
     Route: 065
  5. CYCLOPHOSPHAMIDE. [Suspect]
     Active Substance: CYCLOPHOSPHAMIDE
     Indication: DIFFUSE LARGE B-CELL LYMPHOMA
     Dosage: R-CHOP REGIMEN
     Route: 065
  6. VINCRISTINE [Suspect]
     Active Substance: VINCRISTINE
     Indication: DIFFUSE LARGE B-CELL LYMPHOMA STAGE IV
     Dosage: R-CHOP REGIMEN
     Route: 065
  7. DACLATASVIR. [Concomitant]
     Active Substance: DACLATASVIR
     Indication: HEPATITIS C
     Dosage: UNK
     Route: 065
  8. LENALIDOMIDE [Concomitant]
     Active Substance: LENALIDOMIDE
     Indication: PRODUCT USED FOR UNKNOWN INDICATION
     Dosage: UNK
     Route: 065
  9. LEDIPASVIR [Concomitant]
     Active Substance: LEDIPASVIR
     Indication: CHRONIC HEPATITIS C
     Dosage: UNK
     Route: 065
  10. RITUXIMAB (UNKNOWN) [Suspect]
     Active Substance: RITUXIMAB
     Indication: DIFFUSE LARGE B-CELL LYMPHOMA
     Dosage: R-CHOP REGIMEN
     Route: 065
  11. RITUXIMAB (UNKNOWN) [Suspect]
     Active Substance: RITUXIMAB
     Indication: HEPATIC CIRRHOSIS
  12. PREDNISONE. [Suspect]
     Active Substance: PREDNISONE
     Indication: HEPATIC CIRRHOSIS
     Dosage: R-CHOP REGIMEN
     Route: 065
  13. VINCRISTINE [Suspect]
     Active Substance: VINCRISTINE
     Indication: DIFFUSE LARGE B-CELL LYMPHOMA
     Dosage: UNK
     Route: 065
  14. INTERFERON ALFA-2B [Concomitant]
     Active Substance: INTERFERON ALFA-2B
     Indication: PRODUCT USED FOR UNKNOWN INDICATION
     Dosage: UNK
     Route: 065
  15. RITUXIMAB (UNKNOWN) [Suspect]
     Active Substance: RITUXIMAB
     Indication: DIFFUSE LARGE B-CELL LYMPHOMA STAGE IV
  16. CYCLOPHOSPHAMIDE. [Suspect]
     Active Substance: CYCLOPHOSPHAMIDE
     Indication: HEPATIC CIRRHOSIS
     Dosage: R-CHOP REGIMEN
     Route: 065
  17. RIBAVIRIN. [Concomitant]
     Active Substance: RIBAVIRIN
     Indication: CHRONIC HEPATITIS C
     Dosage: FOR 12 WEEKS
     Route: 065
  18. PREDNISONE. [Suspect]
     Active Substance: PREDNISONE
     Indication: DIFFUSE LARGE B-CELL LYMPHOMA
     Dosage: R-CHOP REGIMEN
     Route: 065
  19. DOXORUBICIN [Suspect]
     Active Substance: DOXORUBICIN
     Indication: HEPATIC CIRRHOSIS
     Dosage: R-CHOP REGIMEN
     Route: 065
  20. SOFOSBUVIR [Concomitant]
     Active Substance: SOFOSBUVIR
     Indication: HEPATITIS C
     Dosage: FOR 12 WEEKS
     Route: 065
  21. SOFOSBUVIR [Concomitant]
     Active Substance: SOFOSBUVIR
     Dosage: FOR 12 WEEKS
     Route: 065
  22. LEDIPASVIR [Concomitant]
     Active Substance: LEDIPASVIR
     Indication: PRODUCT USED FOR UNKNOWN INDICATION
  23. CYCLOPHOSPHAMIDE. [Suspect]
     Active Substance: CYCLOPHOSPHAMIDE
     Indication: DIFFUSE LARGE B-CELL LYMPHOMA
     Dosage: UNK
     Route: 065
  24. DOXORUBICIN [Suspect]
     Active Substance: DOXORUBICIN
     Indication: DIFFUSE LARGE B-CELL LYMPHOMA
     Dosage: R-CHOP REGIMEN
     Route: 065
  25. DOXORUBICIN [Suspect]
     Active Substance: DOXORUBICIN
     Indication: DIFFUSE LARGE B-CELL LYMPHOMA STAGE IV
  26. PREDNISONE. [Suspect]
     Active Substance: PREDNISONE
     Indication: DIFFUSE LARGE B-CELL LYMPHOMA
     Dosage: UNK
     Route: 065
  27. DOXORUBICIN [Suspect]
     Active Substance: DOXORUBICIN
     Indication: DIFFUSE LARGE B-CELL LYMPHOMA
     Dosage: UNK
     Route: 065
  28. VINCRISTINE [Suspect]
     Active Substance: VINCRISTINE
     Indication: HEPATIC CIRRHOSIS
     Dosage: R-CHOP REGIMEN
     Route: 065
  29. SOFOSBUVIR [Concomitant]
     Active Substance: SOFOSBUVIR
     Indication: CHRONIC HEPATITIS C
     Dosage: FOR 12 WEEKS
     Route: 065

REACTIONS (5)
  - Hepatocellular carcinoma [Recovered/Resolved]
  - Hepatitis C [Recovered/Resolved]
  - Product use in unapproved indication [Unknown]
  - Malignant neoplasm progression [Unknown]
  - Diffuse large B-cell lymphoma [Unknown]
